FAERS Safety Report 13661370 (Version 1)
Quarter: 2017Q2

REPORT INFORMATION
  Report Type: Spontaneous
  Country: US (occurrence: US)
  Receive Date: 20170616
  Receipt Date: 20170616
  Transmission Date: 20170830
  Serious: No
  Sender: FDA-Public Use
  Company Number: US-US WORLDMEDS, LLC-USW201612-000870

PATIENT
  Age: 88 Year
  Sex: Female
  Weight: 94.8 kg

DRUGS (19)
  1. METOPROLOL. [Concomitant]
     Active Substance: METOPROLOL
  2. TIZANIDINE. [Concomitant]
     Active Substance: TIZANIDINE
  3. LEVOTHYROXINE. [Concomitant]
     Active Substance: LEVOTHYROXINE
  4. METFORMIN [Concomitant]
     Active Substance: METFORMIN HYDROCHLORIDE
  5. APOKYN [Suspect]
     Active Substance: APOMORPHINE HYDROCHLORIDE
     Indication: PARKINSON^S DISEASE
     Route: 058
     Dates: start: 201611
  6. TIGAN [Concomitant]
     Active Substance: TRIMETHOBENZAMIDE HYDROCHLORIDE
  7. HYDROCHLOROTHIAZIDE. [Concomitant]
     Active Substance: HYDROCHLOROTHIAZIDE
  8. WARFARIN [Concomitant]
     Active Substance: WARFARIN
  9. ROPINIROLE. [Concomitant]
     Active Substance: ROPINIROLE
  10. OXYCODONE-ACETAMINOPHEN [Concomitant]
     Active Substance: ACETAMINOPHEN\OXYCODONE HYDROCHLORIDE
  11. VITAMIN B12 [Concomitant]
     Active Substance: CYANOCOBALAMIN
  12. AMITIZA [Concomitant]
     Active Substance: LUBIPROSTONE
  13. LANSOPRAZOLE. [Concomitant]
     Active Substance: LANSOPRAZOLE
  14. ESCITALOPRAM [Concomitant]
     Active Substance: ESCITALOPRAM OXALATE
  15. APOKYN [Suspect]
     Active Substance: APOMORPHINE HYDROCHLORIDE
  16. CEPHALEXIN. [Concomitant]
     Active Substance: CEPHALEXIN
  17. BENADRYL [Concomitant]
     Active Substance: DIPHENHYDRAMINE HYDROCHLORIDE
  18. OPANA ER [Concomitant]
     Active Substance: OXYMORPHONE HYDROCHLORIDE
  19. CLONAZEPAM. [Concomitant]
     Active Substance: CLONAZEPAM

REACTIONS (2)
  - Nausea [Not Recovered/Not Resolved]
  - Fall [Unknown]

NARRATIVE: CASE EVENT DATE: 20161206
